FAERS Safety Report 4777026-1 (Version None)
Quarter: 2005Q3

REPORT INFORMATION
  Report Type: 
  Country: None (occurrence: None)
  Receive Date: 20050921
  Receipt Date: 20050908
  Transmission Date: 20060218
  Serious: Yes (Disabling)
  Sender: FDA-Public Use
  Company Number: 217588

PATIENT
  Sex: Female

DRUGS (1)
  1. XOLAIR [Suspect]

REACTIONS (5)
  - DIARRHOEA [None]
  - HEADACHE [None]
  - NAUSEA [None]
  - PAIN [None]
  - PHARYNGOLARYNGEAL PAIN [None]
